FAERS Safety Report 9232059 (Version 1)
Quarter: 2013Q2

REPORT INFORMATION
  Report Type: Spontaneous
  Country: US (occurrence: US)
  Receive Date: 20130415
  Receipt Date: 20130415
  Transmission Date: 20140414
  Serious: No
  Sender: FDA-Public Use
  Company Number: US-PFIZER INC-2013115159

PATIENT
  Age: 80 Year
  Sex: Female
  Weight: 79.37 kg

DRUGS (9)
  1. CELEBREX [Suspect]
     Indication: ARTHRITIS
     Dosage: 200MG DAILY
     Dates: end: 2013
  2. TOPROL XL [Concomitant]
     Dosage: 50+25 MG, UNK
  3. LIPITOR [Concomitant]
     Indication: BLOOD CHOLESTEROL INCREASED
     Dosage: 20 MG, UNK
  4. NORVASC [Concomitant]
     Dosage: UNK
  5. PREMARIN [Concomitant]
     Indication: NIGHT SWEATS
     Dosage: UNK
  6. LISINOPRIL [Concomitant]
     Indication: HYPERTENSION
     Dosage: UNK
  7. INDAPAMIDE [Concomitant]
     Indication: HYPERTENSION
     Dosage: UNK
  8. ASMANEX [Concomitant]
     Indication: ASTHMA
     Dosage: UNK
  9. VENTOLIN [Concomitant]
     Indication: ASTHMA
     Dosage: UNK

REACTIONS (4)
  - Drug ineffective [Unknown]
  - Glucose tolerance impaired [Unknown]
  - Gastrooesophageal reflux disease [Unknown]
  - Arthralgia [Recovering/Resolving]
